FAERS Safety Report 6464305-5 (Version None)
Quarter: 2009Q4

REPORT INFORMATION
  Report Type: 
  Country: None (occurrence: None)
  Receive Date: 20091116
  Receipt Date: 20090807
  Transmission Date: 20100525
  Serious: No
  Sender: FDA-Public Use
  Company Number: WAES 0908USA01336

PATIENT

DRUGS (2)
  1. ISENTRESS [Suspect]
  2. TRUVADA [Concomitant]

REACTIONS (1)
  - HYPERSENSITIVITY [None]
